FAERS Safety Report 7107484-9 (Version None)
Quarter: 2010Q4

REPORT INFORMATION
  Report Type: 
  Country: None (occurrence: None)
  Receive Date: 20101018
  Receipt Date: 20100219
  Transmission Date: 20110411
  Serious: Yes (Hospitalization)
  Sender: FDA-Public Use
  Company Number: US-WYE-H10735009

PATIENT
  Age: 47 Year
  Sex: Female
  Weight: 60.84 kg

DRUGS (3)
  1. PREMARIN [Suspect]
     Indication: HORMONE REPLACEMENT THERAPY
     Dosage: ORAL
     Route: 048
     Dates: end: 20090710
  2. EFFEXOR XR [Concomitant]
  3. VYVANSE [Concomitant]

REACTIONS (1)
  - CEREBROVASCULAR ACCIDENT [None]
